FAERS Safety Report 6968194-1 (Version None)
Quarter: 2010Q3

REPORT INFORMATION
  Report Type: 
  Country: None (occurrence: None)
  Receive Date: 20100907
  Receipt Date: 20100901
  Transmission Date: 20110219
  Serious: No
  Sender: FDA-Public Use
  Company Number: US-TEVA-247041USA

PATIENT
  Sex: Male
  Weight: 77.18 kg

DRUGS (1)
  1. AZILECT [Suspect]
     Indication: PARKINSON'S DISEASE
     Dosage: 0.5 MG TO 1 MG DAILY
     Route: 048
     Dates: start: 20100701

REACTIONS (2)
  - CONFUSIONAL STATE [None]
  - HALLUCINATION [None]
